FAERS Safety Report 12585572 (Version 1)
Quarter: 2016Q3

REPORT INFORMATION
  Report Type: Spontaneous
  Country: US (occurrence: US)
  Receive Date: 20160725
  Receipt Date: 20160725
  Transmission Date: 20161109
  Serious: No
  Sender: FDA-Public Use
  Company Number: US-AUROBINDO-AUR-APU-2015-10061

PATIENT
  Sex: Female

DRUGS (1)
  1. ALPRAZOLAM EXTENDED-RELEASE TABLETS [Suspect]
     Active Substance: ALPRAZOLAM
     Indication: ANXIETY
     Dosage: 3 MG AT BED TIME AND 0.5 MG THREE TIMES DURING THE DAY
     Route: 065

REACTIONS (1)
  - Therapeutic response unexpected [Unknown]
